FAERS Safety Report 17228827 (Version 1)
Quarter: 2020Q1

REPORT INFORMATION
  Report Type: Spontaneous
  Country: IT (occurrence: IT)
  Receive Date: 20200103
  Receipt Date: 20200103
  Transmission Date: 20200409
  Serious: Yes (Death, Hospitalization)
  Sender: FDA-Public Use
  Company Number: IT-MYLANLABS-2019M1132834

PATIENT
  Age: 24 Year
  Sex: Female

DRUGS (16)
  1. PREDNISONE. [Suspect]
     Active Substance: PREDNISONE
     Indication: HAEMOPHAGOCYTIC LYMPHOHISTIOCYTOSIS
  2. ETOPOSIDE. [Suspect]
     Active Substance: ETOPOSIDE
     Indication: INFECTIOUS MONONUCLEOSIS
     Route: 065
  3. TRIMETHOPRIM SULFAMETHOXAZOLE [Concomitant]
     Active Substance: SULFAMETHOXAZOLE\TRIMETHOPRIM
     Indication: INFECTIOUS MONONUCLEOSIS
     Dosage: ADMINISTERED THROUGH PERIPHERALLY INSERTED CENTRAL VENOUS CATHETER
     Route: 042
  4. CICLOSPORIN [Suspect]
     Active Substance: CYCLOSPORINE
     Indication: INFECTIOUS MONONUCLEOSIS
     Dosage: ADMINISTERED THROUGH PERIPHERALLY INSERTED CENTRAL VENOUS CATHETER
     Route: 042
  5. IMMUNOGLOBULIN                     /00025201/ [Suspect]
     Active Substance: HUMAN IMMUNOGLOBULIN G
     Indication: INFECTIOUS MONONUCLEOSIS
     Route: 042
  6. IMMUNOGLOBULIN                     /00025201/ [Suspect]
     Active Substance: HUMAN IMMUNOGLOBULIN G
     Indication: HAEMOPHAGOCYTIC LYMPHOHISTIOCYTOSIS
  7. ACICLOVIR [Concomitant]
     Active Substance: ACYCLOVIR
     Indication: HAEMOPHAGOCYTIC LYMPHOHISTIOCYTOSIS
  8. PREDNISONE. [Suspect]
     Active Substance: PREDNISONE
     Indication: INFECTIOUS MONONUCLEOSIS
     Dosage: ADMINISTERED THROUGH PERIPHERALLY INSERTED CENTRAL VENOUS CATHETER
     Route: 042
  9. CICLOSPORIN [Suspect]
     Active Substance: CYCLOSPORINE
     Indication: HAEMOPHAGOCYTIC LYMPHOHISTIOCYTOSIS
  10. RITUXIMAB. [Suspect]
     Active Substance: RITUXIMAB
     Indication: INFECTIOUS MONONUCLEOSIS
     Route: 065
  11. RITUXIMAB. [Suspect]
     Active Substance: RITUXIMAB
     Indication: HAEMOPHAGOCYTIC LYMPHOHISTIOCYTOSIS
  12. CICLOSPORIN [Suspect]
     Active Substance: CYCLOSPORINE
     Indication: HAEMOPHAGOCYTIC LYMPHOHISTIOCYTOSIS
  13. TRIMETHOPRIM SULFAMETHOXAZOLE [Concomitant]
     Active Substance: SULFAMETHOXAZOLE\TRIMETHOPRIM
     Indication: HAEMOPHAGOCYTIC LYMPHOHISTIOCYTOSIS
  14. ETOPOSIDE. [Suspect]
     Active Substance: ETOPOSIDE
     Indication: HAEMOPHAGOCYTIC LYMPHOHISTIOCYTOSIS
  15. CICLOSPORIN [Suspect]
     Active Substance: CYCLOSPORINE
     Indication: INFECTIOUS MONONUCLEOSIS
     Route: 065
  16. ACICLOVIR [Concomitant]
     Active Substance: ACYCLOVIR
     Indication: INFECTIOUS MONONUCLEOSIS
     Dosage: ADMINISTERED THROUGH PERIPHERALLY INSERTED CENTRAL VENOUS CATHETER
     Route: 042

REACTIONS (7)
  - Multiple organ dysfunction syndrome [Fatal]
  - Disseminated intravascular coagulation [Unknown]
  - Staphylococcal infection [Not Recovered/Not Resolved]
  - T-cell lymphoma [Fatal]
  - Hypotension [Unknown]
  - Acute kidney injury [Unknown]
  - Epstein-Barr virus infection [Fatal]
